FAERS Safety Report 9521718 (Version 1)
Quarter: 2013Q1

REPORT INFORMATION
  Report Type: Spontaneous
  Country: US (occurrence: None)
  Receive Date: 20130305
  Receipt Date: 20130305
  Transmission Date: 20140127
  Serious: Yes (Other)
  Sender: FDA-Public Use
  Company Number: 163-21880-12072290

PATIENT
  Age: 80 Year
  Sex: Male
  Weight: 70.31 kg

DRUGS (4)
  1. REVLIMID (LENALIDOMIDE) (CAPSULES) [Suspect]
     Indication: PLASMA CELL MYELOMA
     Dosage: 21 IN 21 D
     Route: 048
     Dates: start: 20120504, end: 20120731
  2. CYTOXAN (CYCLOPHOSPHAMIDE) (UNKNOWN) [Suspect]
     Dosage: 1 IN 3 WK
     Dates: end: 20120726
  3. DEXAMETHASONE (DEXAMETHASONE) (UNKNOWN) [Concomitant]
  4. FOLIC ACID (FOLIC ACID) (UNKNOWN) [Concomitant]

REACTIONS (2)
  - Pancytopenia [None]
  - Platelet count decreased [None]
